FAERS Safety Report 7942244-8 (Version None)
Quarter: 2011Q4

REPORT INFORMATION
  Report Type: 
  Country: None (occurrence: None)
  Receive Date: 20111128
  Receipt Date: 20111122
  Transmission Date: 20120403
  Serious: Yes (Hospitalization)
  Sender: FDA-Public Use
  Company Number: US-GILEAD-2011-0044678

PATIENT
  Sex: Female

DRUGS (3)
  1. LETAIRIS [Suspect]
     Indication: CONNECTIVE TISSUE DISORDER
  2. LETAIRIS [Suspect]
     Indication: RHEUMATOID ARTHRITIS
  3. LETAIRIS [Suspect]
     Indication: PULMONARY ARTERIAL HYPERTENSION
     Dosage: 10 MG, UNK
     Route: 048
     Dates: start: 20070821

REACTIONS (2)
  - RENAL FAILURE ACUTE [None]
  - FLUID OVERLOAD [None]
